FAERS Safety Report 5774399-8 (Version None)
Quarter: 2008Q2

REPORT INFORMATION
  Report Type: 
  Country: None (occurrence: None)
  Receive Date: 20080616
  Receipt Date: 20080611
  Transmission Date: 20081010
  Serious: Yes (Death, Other)
  Sender: FDA-Public Use
  Company Number: ES-ASTRAZENECA-2008AC01500

PATIENT
  Age: 38 Year
  Sex: Female

DRUGS (2)
  1. LIDOCAINE [Suspect]
     Indication: LIPOSUCTION
     Route: 058
  2. MEPIVACAINE HCL [Suspect]
     Indication: LIPOSUCTION
     Route: 058

REACTIONS (3)
  - CARDIO-RESPIRATORY ARREST [None]
  - GRAND MAL CONVULSION [None]
  - OVERDOSE [None]
